FAERS Safety Report 15911419 (Version 1)
Quarter: 2019Q1

REPORT INFORMATION
  Report Type: Spontaneous
  Country: US (occurrence: US)
  Receive Date: 20190204
  Receipt Date: 20190204
  Transmission Date: 20190417
  Serious: Yes (Other)
  Sender: FDA-Public Use
  Company Number: US-PFIZER INC-2019051866

PATIENT
  Age: 58 Year
  Sex: Female

DRUGS (2)
  1. XELJANZ [Suspect]
     Active Substance: TOFACITINIB CITRATE
     Dosage: 5 MG, 2X/DAY
     Route: 048
     Dates: start: 20180706
  2. HUMIRA [Concomitant]
     Active Substance: ADALIMUMAB
     Dosage: EVERY 2 WEEKS
     Route: 058

REACTIONS (3)
  - Weight increased [Unknown]
  - Condition aggravated [Unknown]
  - Swelling [Unknown]
